FAERS Safety Report 19013663 (Version 1)
Quarter: 2021Q1

REPORT INFORMATION
  Report Type: Spontaneous
  Country: US (occurrence: US)
  Receive Date: 20210316
  Receipt Date: 20210316
  Transmission Date: 20210420
  Serious: Yes (Hospitalization)
  Sender: FDA-Public Use
  Company Number: US-MYLANLABS-2021M1015176

PATIENT
  Age: 71 Year
  Sex: Male

DRUGS (8)
  1. PIMAVANSERIN [Suspect]
     Active Substance: PIMAVANSERIN
     Indication: PARKINSON^S DISEASE PSYCHOSIS
     Dosage: OFF?LABEL DOSE
     Route: 065
     Dates: start: 201708
  2. CARBIDOPA/LEVODOPA [Suspect]
     Active Substance: CARBIDOPA\LEVODOPA
     Indication: PARKINSON^S DISEASE
     Dosage: 1 DOSAGE FORM THREE TIMES DAILY
     Route: 065
  3. QUETIAPINE. [Suspect]
     Active Substance: QUETIAPINE
     Indication: PARKINSON^S DISEASE PSYCHOSIS
     Dosage: INCREASED AFTER 1 WEEK TO 25 MG/D
     Route: 065
  4. QUETIAPINE. [Suspect]
     Active Substance: QUETIAPINE
     Dosage: INCREASED TO 50 MG/D
     Route: 065
  5. QUETIAPINE. [Suspect]
     Active Substance: QUETIAPINE
     Dosage: 25 MILLIGRAM, QD
     Route: 065
  6. CITALOPRAM [Concomitant]
     Active Substance: CITALOPRAM HYDROBROMIDE
     Indication: DEPRESSION
     Dosage: 20 MILLIGRAM, QD
     Route: 065
  7. QUETIAPINE. [Suspect]
     Active Substance: QUETIAPINE
     Dosage: 75 MILLIGRAM, QD
     Route: 065
  8. PIMAVANSERIN [Suspect]
     Active Substance: PIMAVANSERIN
     Dosage: AFTER THE SECOND WEEK
     Route: 065
     Dates: start: 2017

REACTIONS (5)
  - Sedation [Unknown]
  - Off label use [Unknown]
  - Parkinson^s disease psychosis [Recovering/Resolving]
  - Bradyphrenia [Unknown]
  - Somnolence [Unknown]
